FAERS Safety Report 25011842 (Version 2)
Quarter: 2025Q1

REPORT INFORMATION
  Report Type: Spontaneous
  Country: US (occurrence: US)
  Receive Date: 20250226
  Receipt Date: 20250314
  Transmission Date: 20250409
  Serious: Yes (Other)
  Sender: BIOGEN
  Company Number: US-BIOGEN-2025BI01301694

PATIENT
  Sex: Female

DRUGS (1)
  1. VUMERITY [Suspect]
     Active Substance: DIROXIMEL FUMARATE
     Indication: Multiple sclerosis
     Route: 050
     Dates: start: 20240123

REACTIONS (5)
  - Seizure [Unknown]
  - Fall [Recovered/Resolved]
  - Road traffic accident [Recovered/Resolved]
  - Injury [Unknown]
  - Back disorder [Unknown]
